FAERS Safety Report 23197111 (Version 2)
Quarter: 2024Q1

REPORT INFORMATION
  Report Type: Spontaneous
  Country: US (occurrence: US)
  Receive Date: 20231117
  Receipt Date: 20240329
  Transmission Date: 20240409
  Serious: Yes (Hospitalization, Other)
  Sender: FDA-Public Use
  Company Number: US-BRACCO-2023US05864

PATIENT
  Age: 43 Year
  Sex: Female

DRUGS (5)
  1. LUMASON [Suspect]
     Active Substance: SULFUR HEXAFLUORIDE
     Indication: Echocardiogram
     Dosage: 1 ML, SINGLE
     Route: 042
     Dates: start: 20231024, end: 20231024
  2. LUMASON [Suspect]
     Active Substance: SULFUR HEXAFLUORIDE
     Indication: Echocardiogram
     Dosage: 1 ML, SINGLE
     Route: 042
     Dates: start: 20231024, end: 20231024
  3. LUMASON [Suspect]
     Active Substance: SULFUR HEXAFLUORIDE
     Indication: Echocardiogram
     Dosage: 1 ML, SINGLE
     Route: 042
     Dates: start: 20231024, end: 20231024
  4. NILOTINIB [Concomitant]
     Active Substance: NILOTINIB
     Indication: Chemotherapy
  5. SODIUM CHLORIDE [Concomitant]
     Active Substance: SODIUM CHLORIDE
     Dosage: 5 ML, SINGLE
     Route: 042
     Dates: start: 20231024, end: 20231024

REACTIONS (3)
  - Seizure [Recovered/Resolved]
  - Erythema [Recovered/Resolved]
  - Nausea [Recovered/Resolved]

NARRATIVE: CASE EVENT DATE: 20231024
